FAERS Safety Report 5217121-6 (Version None)
Quarter: 2007Q1

REPORT INFORMATION
  Report Type: 
  Country: None (occurrence: None)
  Receive Date: 20070124
  Receipt Date: 20070122
  Transmission Date: 20070707
  Serious: Yes (Other)
  Sender: FDA-Public Use
  Company Number: US-GLAXOSMITHKLINE-A0636520A

PATIENT
  Age: 9 Year
  Sex: Male

DRUGS (3)
  1. LAMICTAL [Suspect]
     Dosage: 150MG THREE TIMES PER DAY
     Route: 048
  2. DULCOLAX [Concomitant]
  3. TYLENOL [Concomitant]

REACTIONS (9)
  - COMPLEX PARTIAL SEIZURES [None]
  - CONVULSION [None]
  - HEADACHE [None]
  - PERSONALITY CHANGE [None]
  - PETIT MAL EPILEPSY [None]
  - PHARMACEUTICAL PRODUCT COMPLAINT [None]
  - SOCIAL AVOIDANT BEHAVIOUR [None]
  - VIRAL INFECTION [None]
  - VOMITING [None]
